FAERS Safety Report 8314476-0 (Version None)
Quarter: 2012Q2

REPORT INFORMATION
  Report Type: 
  Country: None (occurrence: None)
  Receive Date: 20120426
  Receipt Date: 20120417
  Transmission Date: 20120825
  Serious: Yes (Hospitalization)
  Sender: FDA-Public Use
  Company Number: US-ACTELION-A-NJ2012-63624

PATIENT

DRUGS (5)
  1. TRACLEER [Suspect]
     Dosage: 125 MG, BID
     Route: 048
  2. OXYGEN [Concomitant]
  3. TRACLEER [Suspect]
     Indication: PULMONARY ARTERIAL HYPERTENSION
     Dosage: 62.5 MG, BID
     Route: 048
  4. TRACLEER [Suspect]
     Dosage: 62.5 MG, BID
     Route: 048
     Dates: start: 20061010
  5. PREDNISONE TAB [Concomitant]

REACTIONS (12)
  - ARTHRALGIA [None]
  - ASTHENIA [None]
  - RESPIRATORY TRACT INFECTION [None]
  - CHILLS [None]
  - MALAISE [None]
  - CYSTITIS [None]
  - FALL [None]
  - DYSPNOEA [None]
  - PNEUMONIA [None]
  - HEART RATE IRREGULAR [None]
  - LOSS OF CONTROL OF LEGS [None]
  - PAIN IN EXTREMITY [None]
